FAERS Safety Report 18002040 (Version 1)
Quarter: 2020Q3

REPORT INFORMATION
  Report Type: Spontaneous
  Country: ES (occurrence: ES)
  Receive Date: 20200709
  Receipt Date: 20200709
  Transmission Date: 20201103
  Serious: Yes (Other)
  Sender: FDA-Public Use
  Company Number: NVSC2020ES185917

PATIENT
  Age: 79 Year
  Sex: Male
  Weight: 85.5 kg

DRUGS (4)
  1. AZITROMICINA [Suspect]
     Active Substance: AZITHROMYCIN DIHYDRATE
     Indication: COVID-19
     Dosage: 500 MG, QD
     Route: 048
     Dates: start: 20200311, end: 20200319
  2. INTERFERON BETA?1B [Suspect]
     Active Substance: INTERFERON BETA-1B
     Indication: HAEMOPHILUS INFECTION
     Dosage: 30 MG, QD
     Route: 058
     Dates: start: 20200311, end: 20200311
  3. IVEMEND [Suspect]
     Active Substance: FOSAPREPITANT DIMEGLUMINE
     Indication: COVID-19
     Dosage: 2 DF, QD
     Route: 048
     Dates: start: 20200311, end: 20200320
  4. CEFOTAXIMA [Suspect]
     Active Substance: CEFOTAXIME SODIUM
     Indication: COVID-19
     Dosage: UNK
     Route: 042
     Dates: start: 20200312, end: 20200317

REACTIONS (1)
  - Hyperbilirubinaemia [Not Recovered/Not Resolved]

NARRATIVE: CASE EVENT DATE: 20200316
